FAERS Safety Report 13558231 (Version 2)
Quarter: 2017Q2

REPORT INFORMATION
  Report Type: Spontaneous
  Country: US (occurrence: US)
  Receive Date: 20170517
  Receipt Date: 20170522
  Transmission Date: 20170830
  Serious: Yes (Other)
  Sender: FDA-Public Use
  Company Number: US-CELGENEUS-USA-20170504057

PATIENT
  Age: 61 Year
  Sex: Male

DRUGS (5)
  1. ENALAPRIL [Concomitant]
     Active Substance: ENALAPRIL
     Indication: HYPERTENSION
     Route: 065
  2. DESONATE [Concomitant]
     Active Substance: DESONIDE
     Indication: HYPERTENSION
     Route: 065
  3. OTEZLA [Suspect]
     Active Substance: APREMILAST
     Indication: PSORIASIS
     Dosage: 60 MILLIGRAM
     Route: 048
     Dates: start: 20170501
  4. AMLODIPINE [Concomitant]
     Active Substance: AMLODIPINE BESYLATE
     Indication: HYPERTENSION
     Route: 065
  5. CARVEDILOL. [Concomitant]
     Active Substance: CARVEDILOL
     Indication: HYPERTENSION
     Route: 065

REACTIONS (2)
  - Faeces soft [Unknown]
  - Pain in extremity [Unknown]

NARRATIVE: CASE EVENT DATE: 20170501
